FAERS Safety Report 7425662-6 (Version None)
Quarter: 2011Q2

REPORT INFORMATION
  Report Type: 
  Country: None (occurrence: None)
  Receive Date: 20110420
  Receipt Date: 20110414
  Transmission Date: 20111010
  Serious: Yes (Hospitalization, Congenital Anomaly, Other)
  Sender: FDA-Public Use
  Company Number: BR-SANOFI-AVENTIS-2011SA023173

PATIENT
  Age: 0 Day
  Sex: Male
  Weight: 1.19 kg

DRUGS (2)
  1. CLEXANE [Suspect]
     Indication: PROPHYLAXIS
     Route: 064
     Dates: start: 20100101
  2. PROGESTERONE [Concomitant]
     Route: 064
     Dates: end: 20110117

REACTIONS (4)
  - JAUNDICE [None]
  - PULMONARY HYPERTENSION [None]
  - DRUG EXPOSURE DURING PREGNANCY [None]
  - HEART DISEASE CONGENITAL [None]
